FAERS Safety Report 5427850-7 (Version None)
Quarter: 2007Q3

REPORT INFORMATION
  Report Type: 
  Country: None (occurrence: None)
  Receive Date: 20070828
  Receipt Date: 20070817
  Transmission Date: 20080115
  Serious: Yes (Other)
  Sender: FDA-Public Use
  Company Number: HQWYE708312OCT04

PATIENT
  Sex: Female
  Weight: 53.57 kg

DRUGS (1)
  1. PREMPRO [Suspect]
     Dosage: 0.625 MG/2.5 MG
     Route: 048
     Dates: start: 19961201, end: 20010701

REACTIONS (2)
  - BREAST CANCER IN SITU [None]
  - BREAST CANCER METASTATIC [None]
